FAERS Safety Report 6480878-0 (Version None)
Quarter: 2009Q4

REPORT INFORMATION
  Report Type: 
  Country: None (occurrence: None)
  Receive Date: 20091208
  Receipt Date: 20091130
  Transmission Date: 20100525
  Serious: Yes (Hospitalization, Other)
  Sender: FDA-Public Use
  Company Number: US-ABBOTT-09P-163-0611146-00

PATIENT
  Sex: Female

DRUGS (5)
  1. SYNTHROID [Suspect]
     Indication: HYPOTHYROIDISM
     Dates: start: 19790101
  2. SYNTHROID [Suspect]
  3. DETROL [Concomitant]
     Indication: HYPERTONIC BLADDER
  4. VITAMINS [Concomitant]
     Indication: DRUG USE FOR UNKNOWN INDICATION
  5. FISH OIL [Concomitant]
     Indication: DRUG USE FOR UNKNOWN INDICATION

REACTIONS (6)
  - CHOLECYSTITIS [None]
  - DRY SKIN [None]
  - FATIGUE [None]
  - INTESTINAL RESECTION [None]
  - ONYCHOCLASIS [None]
  - TRICHORRHEXIS [None]
